FAERS Safety Report 4520956-6 (Version None)
Quarter: 2004Q4

REPORT INFORMATION
  Report Type: 
  Country: None (occurrence: None)
  Receive Date: 20041206
  Receipt Date: 20041206
  Transmission Date: 20050328
  Serious: Yes (Hospitalization)
  Sender: FDA-Public Use
  Company Number: None

PATIENT
  Sex: Female
  Weight: 47.6277 kg

DRUGS (2)
  1. GEMCITABINE   100MG/ML   LILLY [Suspect]
     Indication: PANCREATIC CARCINOMA
     Dosage: 1000MG/M2   DAY 1 + 15   INTRAVENOUS
     Route: 042
     Dates: start: 20040929, end: 20041122
  2. CISPLATIN [Suspect]
     Indication: PANCREATIC CARCINOMA
     Dosage: 20MG/M2      DAY 1 + 15    INTRAVENOUS
     Route: 042
     Dates: start: 20040929, end: 20041122

REACTIONS (3)
  - BACTERIAL INFECTION [None]
  - BLOOD CULTURE POSITIVE [None]
  - PYREXIA [None]
